FAERS Safety Report 7677558-2 (Version None)
Quarter: 2011Q3

REPORT INFORMATION
  Report Type: 
  Country: None (occurrence: None)
  Receive Date: 20110811
  Receipt Date: 20110808
  Transmission Date: 20111222
  Serious: Yes (Other)
  Sender: FDA-Public Use
  Company Number: US-CEPHALON-US017722

PATIENT
  Sex: Male
  Weight: 104 kg

DRUGS (12)
  1. LIPITOR [Concomitant]
     Route: 048
  2. NORVASC [Concomitant]
     Dosage: PRN BP ABOVE 130/80MMHG
     Route: 048
  3. LAMICTAL [Concomitant]
     Route: 048
  4. EFFEXOR XR [Concomitant]
     Route: 048
  5. PROVIGIL [Suspect]
     Indication: BIPOLAR DISORDER
  6. PROVIGIL [Suspect]
     Indication: DEPRESSION
  7. NEXIUM [Concomitant]
     Route: 048
  8. VALIUM [Concomitant]
     Route: 048
  9. LUNESTA [Concomitant]
     Route: 048
  10. ABILIFY [Concomitant]
     Route: 048
  11. PROVIGIL [Suspect]
     Indication: SLEEP APNOEA SYNDROME
     Route: 048
     Dates: start: 20040101
  12. SEROQUEL [Concomitant]
     Route: 048

REACTIONS (4)
  - LEFT VENTRICULAR HYPERTROPHY [None]
  - FATIGUE [None]
  - MITRAL VALVE PROLAPSE [None]
  - ELECTROCARDIOGRAM T WAVE ABNORMAL [None]
